FAERS Safety Report 14215741 (Version 1)
Quarter: 2017Q4

REPORT INFORMATION
  Report Type: Spontaneous
  Country: BR (occurrence: BR)
  Receive Date: 20171122
  Receipt Date: 20171122
  Transmission Date: 20180321
  Serious: Yes (Hospitalization, Other)
  Sender: FDA-Public Use
  Company Number: BR-MYLANLABS-2017M1074236

PATIENT
  Age: 63 Year
  Sex: Male

DRUGS (7)
  1. FLAGYL [Suspect]
     Active Substance: METRONIDAZOLE\METRONIDAZOLE HYDROCHLORIDE
     Indication: DIVERTICULUM
     Dosage: 1 DF, UNK
     Route: 048
     Dates: start: 20171027, end: 20171028
  2. XARELTO [Concomitant]
     Active Substance: RIVAROXABAN
     Indication: PRODUCT USED FOR UNKNOWN INDICATION
     Dosage: UNK
  3. AAS [Concomitant]
     Active Substance: ASPIRIN
     Indication: PROPHYLAXIS
     Dosage: UNK
     Dates: start: 2017
  4. VASTAREL [Concomitant]
     Active Substance: TRIMETAZIDINE DIHYDROCHLORIDE
     Indication: PRODUCT USED FOR UNKNOWN INDICATION
     Dosage: UNK
  5. PLASIL [Suspect]
     Active Substance: METOCLOPRAMIDE HYDROCHLORIDE
     Indication: MALAISE
     Dosage: UNK
  6. DRAMAMINE [Suspect]
     Active Substance: DIMENHYDRINATE
     Indication: MALAISE
     Dosage: UNK
  7. ZOLPIDEM [Suspect]
     Active Substance: ZOLPIDEM\ZOLPIDEM TARTRATE
     Indication: SLEEP DISORDER
     Dosage: UNK

REACTIONS (19)
  - Throat tightness [Recovering/Resolving]
  - Diverticulitis [Recovering/Resolving]
  - Product use issue [Recovering/Resolving]
  - Gait disturbance [Recovering/Resolving]
  - Ataxia [Recovering/Resolving]
  - Microangiopathy [Recovering/Resolving]
  - Computerised tomogram abnormal [Recovering/Resolving]
  - Arthropathy [Recovering/Resolving]
  - Dyspnoea [Recovering/Resolving]
  - Haemorrhage [Recovering/Resolving]
  - Gliosis [Recovering/Resolving]
  - Dyskinesia [Recovering/Resolving]
  - Carotid artery calcification [Recovering/Resolving]
  - Hypersensitivity [Recovering/Resolving]
  - Unevaluable event [Recovering/Resolving]
  - Epiglottic oedema [Recovering/Resolving]
  - Swollen tongue [Recovering/Resolving]
  - Dysarthria [Recovering/Resolving]
  - Malaise [Recovering/Resolving]

NARRATIVE: CASE EVENT DATE: 20171028
